FAERS Safety Report 8890277 (Version 1)
Quarter: 2012Q4

REPORT INFORMATION
  Report Type: 
  Country: CA (occurrence: CA)
  Receive Date: 20121106
  Receipt Date: 20121106
  Transmission Date: 20130627
  Serious: Yes (Hospitalization, Other)
  Sender: FDA-Public Use
  Company Number: PHMT2007CA01014

PATIENT
  Sex: Female

DRUGS (4)
  1. SANDOSTATIN LAR [Suspect]
     Indication: CARCINOID TUMOUR
     Dosage: 30 mg every 4 weeks
     Route: 030
     Dates: start: 20040713, end: 20070306
  2. SANDOSTATIN LAR [Suspect]
     Dosage: 30mg every 4 weeks
  3. DRUG THERAPY NOS [Concomitant]
     Indication: PAIN
     Dosage: pain medication
  4. MOTRIN [Concomitant]

REACTIONS (23)
  - Lymphadenopathy [Recovering/Resolving]
  - Pain [Recovering/Resolving]
  - Pulmonary mass [Recovering/Resolving]
  - Pleural effusion [Unknown]
  - Chest pain [Unknown]
  - Cough [Unknown]
  - Dyspnoea [Unknown]
  - Pericardial effusion [Unknown]
  - Cervical cord compression [Recovered/Resolved]
  - Back pain [Recovered/Resolved]
  - Asthenia [Recovered/Resolved]
  - Recurrent cancer [Unknown]
  - Neuroendocrine carcinoma metastatic [Unknown]
  - Paraesthesia [Unknown]
  - Mouth ulceration [Unknown]
  - Anxiety [Unknown]
  - Oedema peripheral [Unknown]
  - Contusion [Unknown]
  - Pain in extremity [Unknown]
  - Hypoaesthesia [Unknown]
  - Blood iron decreased [Unknown]
  - Diarrhoea [Unknown]
  - Dizziness [Unknown]
